FAERS Safety Report 7148113-8 (Version None)
Quarter: 2010Q4

REPORT INFORMATION
  Report Type: 
  Country: None (occurrence: None)
  Receive Date: 20101209
  Receipt Date: 20101126
  Transmission Date: 20110411
  Serious: No
  Sender: FDA-Public Use
  Company Number: US-PFIZER INC-2010138018

PATIENT
  Age: 9 Year
  Sex: Male
  Weight: 30 kg

DRUGS (2)
  1. GENOTROPIN [Suspect]
     Indication: GROWTH HORMONE DEFICIENCY
     Dosage: 0.77 MG, 1X/DAY
     Route: 058
     Dates: start: 20101020, end: 20101027
  2. GENOTROPIN [Suspect]
     Dosage: 0.77 MG, 1X/DAY
     Route: 058
     Dates: start: 20101104

REACTIONS (1)
  - URTICARIA [None]
